FAERS Safety Report 19473777 (Version 1)
Quarter: 2021Q2

REPORT INFORMATION
  Report Type: Spontaneous
  Country: US (occurrence: US)
  Receive Date: 20210629
  Receipt Date: 20210629
  Transmission Date: 20210717
  Serious: No
  Sender: FDA-Public Use
  Company Number: US-GLAXOSMITHKLINE-2020227273

PATIENT
  Age: 81 Year
  Sex: Female
  Weight: 67.59 kg

DRUGS (2)
  1. ADVIL [Suspect]
     Active Substance: IBUPROFEN
     Indication: PAIN
     Dosage: UNK, AS NEEDED
     Dates: start: 2020
  2. ADVIL [Suspect]
     Active Substance: IBUPROFEN
     Indication: BACK PAIN

REACTIONS (2)
  - Poor quality product administered [Unknown]
  - Product commingling [Unknown]

NARRATIVE: CASE EVENT DATE: 2020
